FAERS Safety Report 15269144 (Version 1)
Quarter: 2018Q3

REPORT INFORMATION
  Report Type: Report from Study
  Country: GB (occurrence: GB)
  Receive Date: 20180813
  Receipt Date: 20180813
  Transmission Date: 20181010
  Serious: Yes (Other)
  Sender: FDA-Public Use
  Company Number: GB-TEVA-2018-GB-939339

PATIENT
  Age: 62 Year
  Sex: Male

DRUGS (4)
  1. DEXAMETHASONE. [Suspect]
     Active Substance: DEXAMETHASONE
     Indication: PLASMA CELL MYELOMA
     Dosage: 40 MG, DOSAGE FORM: UNSPECIFIED, ON DAY 1, 8, 15
     Route: 065
     Dates: start: 201307
  2. CYCLOPHOSPHAMIDE. [Suspect]
     Active Substance: CYCLOPHOSPHAMIDE
     Indication: PLASMA CELL MYELOMA
     Dosage: 500 MG, DOSAGE FORM: UNSPECIFIED, ON DAY 1, 8, 15
     Route: 065
     Dates: start: 201307
  3. REVLIMID [Suspect]
     Active Substance: LENALIDOMIDE
     Indication: PLASMA CELL MYELOMA
     Dosage: 25 MG, DOSAGE FORM: UNSPECIFIED, ON DAY 1?21
     Route: 065
     Dates: start: 201307
  4. VELCADE [Suspect]
     Active Substance: BORTEZOMIB
     Indication: PLASMA CELL MYELOMA
     Dosage: DOSAGE FORM: LYOPHILIZED POWDER, ON DAY 1, 8, 15
     Dates: start: 20130702, end: 20131025

REACTIONS (2)
  - Disease progression [Unknown]
  - Neuropathy peripheral [Recovering/Resolving]

NARRATIVE: CASE EVENT DATE: 2013
